FAERS Safety Report 15682360 (Version 1)
Quarter: 2018Q4

REPORT INFORMATION
  Report Type: Spontaneous
  Country: US (occurrence: US)
  Receive Date: 20181203
  Receipt Date: 20181203
  Transmission Date: 20190205
  Serious: No
  Sender: FDA-Public Use
  Company Number: US-PFIZER INC-2018493106

PATIENT
  Age: 3 Year

DRUGS (1)
  1. EUCRISA [Suspect]
     Active Substance: CRISABOROLE
     Dosage: WAS APPLIED TWICE

REACTIONS (2)
  - Dry skin [Unknown]
  - Application site pain [Unknown]
